FAERS Safety Report 8890935 (Version 1)
Quarter: 2012Q4

REPORT INFORMATION
  Report Type: 
  Country: US (occurrence: US)
  Receive Date: 20121107
  Receipt Date: 20121107
  Transmission Date: 20130627
  Serious: Yes (Other)
  Sender: FDA-Public Use
  Company Number: US-BAYER-2012-115030

PATIENT
  Age: 76 Year
  Sex: Male

DRUGS (5)
  1. BAYER ASPIRIN REGIMEN ADULT LOW STRENGTH [Suspect]
     Indication: TIA
     Dosage: 81 mg, QD
     Dates: start: 2008
  2. LORATADINE [Suspect]
     Indication: MULTIPLE ALLERGIES
     Dosage: Daily dose 1 DF
     Route: 048
  3. ACETYLSALICYLIC ACID [Suspect]
     Indication: TIA
     Dosage: UNK
     Dates: start: 2008
  4. PLAVIX [Concomitant]
     Indication: TIA
     Dosage: UNK
     Dates: start: 2006
  5. FISH OIL [Concomitant]
     Dosage: UNK

REACTIONS (2)
  - Gastric ulcer perforation [Not Recovered/Not Resolved]
  - Haemorrhage [Not Recovered/Not Resolved]
